FAERS Safety Report 23031275 (Version 2)
Quarter: 2023Q4

REPORT INFORMATION
  Report Type: Spontaneous
  Country: BR (occurrence: None)
  Receive Date: 20231005
  Receipt Date: 20231017
  Transmission Date: 20240109
  Serious: Yes (Death)
  Sender: FDA-Public Use
  Company Number: BR-ROCHE-3429999

PATIENT
  Age: 59 Year
  Sex: Male

DRUGS (4)
  1. AVASTIN [Suspect]
     Active Substance: BEVACIZUMAB
     Indication: Hepatic cirrhosis
     Route: 042
     Dates: start: 20220708, end: 20230728
  2. AVASTIN [Suspect]
     Active Substance: BEVACIZUMAB
     Indication: Non-alcoholic steatohepatitis
  3. TECENTRIQ [Suspect]
     Active Substance: ATEZOLIZUMAB
     Indication: Hepatic cirrhosis
     Route: 041
     Dates: start: 20220708, end: 20230728
  4. TECENTRIQ [Suspect]
     Active Substance: ATEZOLIZUMAB
     Indication: Non-alcoholic steatohepatitis

REACTIONS (4)
  - Hepatic mass [Fatal]
  - Tumour thrombosis [Fatal]
  - Liver disorder [Fatal]
  - Hepatic cirrhosis [Fatal]
